FAERS Safety Report 25267531 (Version 4)
Quarter: 2025Q3

REPORT INFORMATION
  Report Type: Spontaneous
  Country: US (occurrence: US)
  Receive Date: 20250505
  Receipt Date: 20250715
  Transmission Date: 20251020
  Serious: No
  Sender: BIOVITRUM
  Company Number: US-BIOVITRUM-2025-US-006124

PATIENT
  Age: 73 Year
  Sex: Male

DRUGS (5)
  1. VONJO [Suspect]
     Active Substance: PACRITINIB
     Indication: Myeloproliferative neoplasm
     Route: 048
     Dates: start: 20250419
  2. VONJO [Suspect]
     Active Substance: PACRITINIB
  3. VONJO [Suspect]
     Active Substance: PACRITINIB
  4. VONJO [Suspect]
     Active Substance: PACRITINIB
     Route: 048
     Dates: start: 20250419
  5. PROCRIT [Concomitant]
     Active Substance: ERYTHROPOIETIN
     Indication: Product used for unknown indication

REACTIONS (13)
  - Fatigue [Unknown]
  - Dizziness [Unknown]
  - Seasonal allergy [Unknown]
  - Intentional product misuse [Not Recovered/Not Resolved]
  - Nausea [Unknown]
  - Appetite disorder [Unknown]
  - Ageusia [Unknown]
  - Peripheral swelling [Unknown]
  - Asthenia [Unknown]
  - Emotional disorder [Unknown]
  - Vomiting [Unknown]
  - Mycotic allergy [Unknown]
  - Dust allergy [Unknown]

NARRATIVE: CASE EVENT DATE: 20250419
